FAERS Safety Report 8588614-9 (Version None)
Quarter: 2012Q3

REPORT INFORMATION
  Report Type: 
  Country: None (occurrence: None)
  Receive Date: 20120813
  Receipt Date: 20120809
  Transmission Date: 20120928
  Serious: Yes (Death, Other)
  Sender: FDA-Public Use
  Company Number: PHHY2011JP19798

PATIENT
  Age: 59 Year
  Sex: Male

DRUGS (5)
  1. METHOTREXATE [Concomitant]
  2. GANCICLOVIR [Concomitant]
  3. NEORAL [Suspect]
     Indication: ALLOGENIC BONE MARROW TRANSPLANTATION THERAPY
     Route: 048
  4. FLUDARABINE PHOSPHATE [Concomitant]
     Dosage: 25 MG/M2 FOR 5 DAYS
  5. MELPHALAN HYDROCHLORIDE [Concomitant]
     Dosage: 70 MG/M2 FOR 2 DAYS

REACTIONS (16)
  - CYTOMEGALOVIRUS INFECTION [None]
  - ACUTE MYELOID LEUKAEMIA [None]
  - CEREBRAL TOXOPLASMOSIS [None]
  - FRUSTRATION [None]
  - HALLUCINATION, AUDITORY [None]
  - PARKINSONISM [None]
  - AGNOSIA [None]
  - PNEUMONIA CYTOMEGALOVIRAL [None]
  - RESPIRATORY DISORDER [None]
  - PYREXIA [None]
  - MICTURITION DISORDER [None]
  - MOTOR DYSFUNCTION [None]
  - GRAFT VERSUS HOST DISEASE IN SKIN [None]
  - ALTERED STATE OF CONSCIOUSNESS [None]
  - ENCEPHALOPATHY [None]
  - MEMORY IMPAIRMENT [None]
